FAERS Safety Report 23845879 (Version 1)
Quarter: 2024Q2

REPORT INFORMATION
  Report Type: Spontaneous
  Country: US (occurrence: US)
  Receive Date: 20240512
  Receipt Date: 20240512
  Transmission Date: 20240716
  Serious: No
  Sender: FDA-Public Use
  Company Number: US-CIPLA LTD.-2023US07678

PATIENT

DRUGS (2)
  1. ALBUTEROL [Suspect]
     Active Substance: ALBUTEROL
     Indication: Wheezing
     Dosage: 2 PUFFS (180 MCG) EVERY 4 HOURS AS NEEDED
     Route: 048
     Dates: start: 20231116
  2. ALBUTEROL [Suspect]
     Active Substance: ALBUTEROL
     Indication: Dyspnoea
     Dosage: 2 PUFFS (180 MCG) EVERY 4 HOURS AS NEEDED
     Route: 048
     Dates: start: 202311

REACTIONS (6)
  - Dyspnoea [Unknown]
  - Device delivery system issue [Unknown]
  - Product deposit [Unknown]
  - Product cleaning inadequate [Unknown]
  - Device malfunction [Unknown]
  - Wrong technique in product usage process [Unknown]

NARRATIVE: CASE EVENT DATE: 20231101
